FAERS Safety Report 4667862-4 (Version None)
Quarter: 2005Q2

REPORT INFORMATION
  Report Type: 
  Country: None (occurrence: None)
  Receive Date: 20050520
  Receipt Date: 20050404
  Transmission Date: 20051028
  Serious: Yes (Death, Life-Threatening, Hospitalization, Disabling)
  Sender: FDA-Public Use
  Company Number: US-MERCK-0504USA00413

PATIENT
  Age: 70 Year
  Sex: Female
  Weight: 80 kg

DRUGS (15)
  1. CANCIDAS [Suspect]
     Indication: ASPERGILLOSIS
     Route: 042
     Dates: start: 20050116, end: 20050116
  2. CANCIDAS [Suspect]
     Route: 042
     Dates: start: 20050117, end: 20050209
  3. [COMPOSITION UNSPECIFIED] [Concomitant]
     Route: 065
  4. CEFEPIME [Concomitant]
     Indication: PYREXIA
     Route: 042
     Dates: start: 20050116, end: 20050203
  5. CEFEPIME [Concomitant]
     Indication: PNEUMONIA
     Route: 042
     Dates: start: 20050116, end: 20050203
  6. CLOPIDOGREL BISULFATE [Concomitant]
     Route: 048
     Dates: start: 20050111, end: 20050201
  7. ALPRAZOLAM [Concomitant]
     Indication: ANXIETY
     Route: 048
     Dates: start: 20050109, end: 20050216
  8. CARDIZEM [Concomitant]
     Route: 048
     Dates: start: 20050109, end: 20050216
  9. COZAAR [Concomitant]
     Route: 065
  10. PAXIL [Concomitant]
     Route: 065
  11. TRAZODONE HYDROCHLORIDE [Concomitant]
     Route: 065
  12. PROTONIX [Concomitant]
     Route: 065
  13. SYNTHROID [Concomitant]
     Route: 065
  14. SOLU-MEDROL [Concomitant]
     Route: 065
  15. XANAX [Concomitant]
     Route: 065

REACTIONS (4)
  - APLASTIC ANAEMIA [None]
  - OVARIAN CANCER [None]
  - PANCYTOPENIA [None]
  - SEPSIS [None]
